FAERS Safety Report 7132131-X (Version None)
Quarter: 2010Q4

REPORT INFORMATION
  Report Type: 
  Country: None (occurrence: None)
  Receive Date: 20101202
  Receipt Date: 20101120
  Transmission Date: 20110411
  Serious: Yes (Other)
  Sender: FDA-Public Use
  Company Number: US-SANOFI-AVENTIS-2010SA072687

PATIENT
  Sex: Male

DRUGS (1)
  1. JEVTANA KIT [Suspect]
     Indication: PROSTATE CANCER
     Route: 041

REACTIONS (1)
  - INTESTINAL PERFORATION [None]
